FAERS Safety Report 11685003 (Version 5)
Quarter: 2016Q4

REPORT INFORMATION
  Report Type: Report from Study
  Country: JP (occurrence: JP)
  Receive Date: 20151030
  Receipt Date: 20161122
  Transmission Date: 20170206
  Serious: Yes (Hospitalization, Other)
  Sender: FDA-Public Use
  Company Number: JP-AMGEN-JPNSP2015114406

PATIENT
  Age: 60 Year
  Sex: Female
  Weight: 43 kg

DRUGS (13)
  1. CINACALCET HCL [Suspect]
     Active Substance: CINACALCET HYDROCHLORIDE
     Dosage: 25 MG, QD
     Route: 048
     Dates: start: 20150508
  2. CINACALCET HCL [Suspect]
     Active Substance: CINACALCET HYDROCHLORIDE
     Dosage: 25 MG, BID
     Route: 048
     Dates: start: 20150717
  3. TERNELIN [Concomitant]
     Active Substance: TIZANIDINE
     Dosage: 3 MG, UNK
     Route: 048
     Dates: end: 20150507
  4. ALENDRONATE [Concomitant]
     Active Substance: ALENDRONATE SODIUM
     Indication: OSTEOPOROSIS
  5. LOXONIN [Concomitant]
     Active Substance: LOXOPROFEN SODIUM
     Dosage: 180 MG, UNK
     Route: 048
     Dates: start: 20160328, end: 20160407
  6. REBAMIPIDE [Concomitant]
     Active Substance: REBAMIPIDE
     Dosage: 300 MG, UNK
     Route: 048
     Dates: start: 20160328, end: 20160407
  7. DICLOFENAC NA [Concomitant]
     Active Substance: DICLOFENAC SODIUM
     Dosage: 50 MG, UNK
     Route: 054
     Dates: start: 20151205, end: 20160330
  8. ALENDRONATE [Concomitant]
     Active Substance: ALENDRONATE SODIUM
     Indication: HYPERPARATHYROIDISM PRIMARY
     Dosage: 7 MG, UNK
     Route: 048
  9. ULGUT [Concomitant]
     Dosage: 600 MG/DL, UNK
     Route: 048
     Dates: start: 20150424
  10. MUCOSTA [Concomitant]
     Active Substance: REBAMIPIDE
     Dosage: 300 MG, UNK
     Route: 048
     Dates: start: 20150424, end: 20150521
  11. PARIET [Concomitant]
     Active Substance: RABEPRAZOLE SODIUM
     Dosage: 5 TO 10 MG, UNK
     Route: 048
     Dates: start: 20150424
  12. CINACALCET HCL [Suspect]
     Active Substance: CINACALCET HYDROCHLORIDE
     Indication: HYPERPARATHYROIDISM PRIMARY
     Dosage: 25 MG, QOD
     Route: 048
     Dates: start: 20150410
  13. CINACALCET HCL [Suspect]
     Active Substance: CINACALCET HYDROCHLORIDE
     Dosage: 12.5 MG, TID
     Route: 048
     Dates: start: 20151106

REACTIONS (10)
  - Abdominal discomfort [Recovering/Resolving]
  - Sinus bradycardia [Not Recovered/Not Resolved]
  - Blood pressure decreased [Recovered/Resolved]
  - Depressed level of consciousness [Recovered/Resolved]
  - Headache [Recovering/Resolving]
  - Discomfort [Recovering/Resolving]
  - Myalgia [Recovering/Resolving]
  - Abdominal discomfort [Recovering/Resolving]
  - Feeling abnormal [Recovering/Resolving]
  - Sinus bradycardia [Not Recovered/Not Resolved]

NARRATIVE: CASE EVENT DATE: 20150424
